FAERS Safety Report 23837814 (Version 3)
Quarter: 2024Q2

REPORT INFORMATION
  Report Type: Spontaneous
  Country: US (occurrence: US)
  Receive Date: 20240509
  Receipt Date: 20240619
  Transmission Date: 20240716
  Serious: Yes (Hospitalization, Other)
  Sender: FDA-Public Use
  Company Number: US-SA-SAC20240506000901

PATIENT
  Age: 72 Year
  Sex: Male

DRUGS (2)
  1. CAPRELSA [Suspect]
     Active Substance: VANDETANIB
     Indication: Thyroid cancer
     Dosage: 300 MG, QD
     Route: 048
  2. CAPRELSA [Suspect]
     Active Substance: VANDETANIB
     Dosage: 100 MG, QD
     Route: 048

REACTIONS (1)
  - Burns third degree [Unknown]
